FAERS Safety Report 7732323-2 (Version None)
Quarter: 2011Q3

REPORT INFORMATION
  Report Type: 
  Country: None (occurrence: None)
  Receive Date: 20110906
  Receipt Date: 20110831
  Transmission Date: 20111222
  Serious: Yes (Hospitalization)
  Sender: FDA-Public Use
  Company Number: ES-AMGEN-ESPCT2011043939

PATIENT
  Age: 63 Year
  Sex: Female

DRUGS (4)
  1. PANITUMUMAB [Suspect]
     Indication: COLORECTAL CANCER
     Dosage: 400 MG, Q2WK
     Route: 042
     Dates: start: 20110711
  2. SIMVASTATIN [Concomitant]
     Dosage: 10 MG, QD
     Route: 048
  3. 5-FLUORACILO [Concomitant]
     Dosage: 16 MG, Q4WK
     Route: 042
     Dates: start: 20110711
  4. MITOMICINA C [Concomitant]
     Dosage: 6680 MG, Q4WK
     Route: 042
     Dates: start: 20110711

REACTIONS (2)
  - ERYTHEMA [None]
  - RADIATION SKIN INJURY [None]
